FAERS Safety Report 6343655-7 (Version None)
Quarter: 2009Q3

REPORT INFORMATION
  Report Type: 
  Country: None (occurrence: None)
  Receive Date: 20090903
  Receipt Date: 20090819
  Transmission Date: 20100115
  Serious: Yes (Death, Hospitalization)
  Sender: FDA-Public Use
  Company Number: 2009002524

PATIENT
  Age: 78 Year
  Sex: Female

DRUGS (1)
  1. TARCEVA [Suspect]
     Dosage: 100 MG, QD, ORAL
     Route: 048

REACTIONS (1)
  - CONFUSIONAL STATE [None]
